FAERS Safety Report 7468587-2 (Version None)
Quarter: 2011Q2

REPORT INFORMATION
  Report Type: 
  Country: None (occurrence: None)
  Receive Date: 20110509
  Receipt Date: 20110428
  Transmission Date: 20111010
  Serious: Yes (Hospitalization)
  Sender: FDA-Public Use
  Company Number: US-BAYER-2011-037203

PATIENT
  Age: 25 Year
  Sex: Female

DRUGS (1)
  1. AVELOX [Suspect]
     Route: 048

REACTIONS (2)
  - PALPITATIONS [None]
  - PAIN [None]
